FAERS Safety Report 6622753-4 (Version None)
Quarter: 2010Q1

REPORT INFORMATION
  Report Type: 
  Country: None (occurrence: None)
  Receive Date: 20100304
  Receipt Date: 20100217
  Transmission Date: 20100710
  Serious: Yes (Hospitalization)
  Sender: FDA-Public Use
  Company Number: 003556

PATIENT
  Sex: Female

DRUGS (10)
  1. CERTOLIZUMAB PEGOL (CERTOLIZUMAB PEGOL) [Suspect]
     Indication: RHEUMATOID ARTHRITIS
     Dosage: 200 MG 1X/2 WEEKS, I INJECTION EVERY TWO WEEKS SUBCUTANEOUS
     Route: 058
     Dates: start: 20091009, end: 20091204
  2. PREDNISOLONE [Suspect]
     Indication: RHEUMATOID ARTHRITIS
     Dosage: 7.5 MG, DAILY ORAL
     Route: 048
  3. FAMOTIDINE [Concomitant]
  4. BENEXATE [Concomitant]
  5. ALFACALCIDOL [Concomitant]
  6. FOLIC ACID [Concomitant]
  7. ALENDRONATE SODIUM [Concomitant]
  8. DICLOFENAC SODIUM [Concomitant]
  9. MAGNESIUM OXIDE [Concomitant]
  10. METHOTREXATE [Concomitant]

REACTIONS (8)
  - C-REACTIVE PROTEIN INCREASED [None]
  - GAIT DISTURBANCE [None]
  - INFLAMMATION [None]
  - INFLUENZA [None]
  - MONARTHRITIS [None]
  - PYREXIA [None]
  - SUBCUTANEOUS ABSCESS [None]
  - SYNOVIAL RUPTURE [None]
